FAERS Safety Report 8456787-4 (Version None)
Quarter: 2012Q2

REPORT INFORMATION
  Report Type: 
  Country: None (occurrence: None)
  Receive Date: 20120621
  Receipt Date: 20120614
  Transmission Date: 20120825
  Serious: Yes (Death, Hospitalization, Other)
  Sender: FDA-Public Use
  Company Number: DE-ACTELION-A-US2012-66557

PATIENT

DRUGS (2)
  1. TRACLEER [Concomitant]
     Indication: PULMONARY ARTERIAL HYPERTENSION
     Dosage: UNK
     Route: 048
     Dates: end: 20120604
  2. VENTAVIS [Suspect]
     Indication: PULMONARY ARTERIAL HYPERTENSION
     Dosage: X9/DAY
     Route: 055
     Dates: start: 20120504, end: 20120604

REACTIONS (7)
  - PREGNANCY [None]
  - BRONCHITIS [None]
  - VAGINAL HAEMORRHAGE [None]
  - CAESAREAN SECTION [None]
  - PULMONARY ARTERIAL HYPERTENSION [None]
  - PHARYNGEAL HAEMORRHAGE [None]
  - PREMATURE BABY [None]
